FAERS Safety Report 25144268 (Version 1)
Quarter: 2025Q2

REPORT INFORMATION
  Report Type: Spontaneous
  Country: BR (occurrence: BR)
  Receive Date: 20250401
  Receipt Date: 20250401
  Transmission Date: 20250717
  Serious: Yes (Hospitalization, Other)
  Sender: CELLTRION
  Company Number: BR-CELLTRION INC.-2025BR007966

PATIENT

DRUGS (4)
  1. INFLIXIMAB [Suspect]
     Active Substance: INFLIXIMAB
     Indication: Colitis ulcerative
     Route: 042
     Dates: start: 20221226
  2. INFLIXIMAB [Suspect]
     Active Substance: INFLIXIMAB
     Route: 042
     Dates: start: 20240626
  3. INFLIXIMAB [Suspect]
     Active Substance: INFLIXIMAB
     Route: 042
     Dates: start: 20250312
  4. DOSTINEX [Concomitant]
     Active Substance: CABERGOLINE
     Indication: Lactation inhibition therapy
     Route: 048

REACTIONS (3)
  - Colitis ulcerative [Not Recovered/Not Resolved]
  - Maternal exposure during pregnancy [Unknown]
  - Intentional dose omission [Unknown]
